FAERS Safety Report 17504757 (Version 2)
Quarter: 2020Q1

REPORT INFORMATION
  Report Type: Report from Study
  Country: US (occurrence: US)
  Receive Date: 20200305
  Receipt Date: 20200313
  Transmission Date: 20200409
  Serious: Yes (Hospitalization, Other)
  Sender: FDA-Public Use
  Company Number: US-EXELIXIS-XL18420027799

PATIENT

DRUGS (2)
  1. NIVOLUMAB [Suspect]
     Active Substance: NIVOLUMAB
     Indication: NON-RENAL CELL CARCINOMA OF KIDNEY
     Dosage: 240 MG, Q2WEEKS
     Route: 042
     Dates: start: 20191017, end: 20200204
  2. XL184 [Suspect]
     Active Substance: CABOZANTINIB
     Indication: NON-RENAL CELL CARCINOMA OF KIDNEY
     Dosage: 40 MG, QD
     Route: 048
     Dates: start: 20191017

REACTIONS (4)
  - Embolism [Unknown]
  - Pulmonary embolism [Unknown]
  - Diaphragmatic hernia [Unknown]
  - Anaemia [Unknown]

NARRATIVE: CASE EVENT DATE: 20200210
